FAERS Safety Report 20030844 (Version 1)
Quarter: 2021Q4

REPORT INFORMATION
  Report Type: Spontaneous
  Country: AU (occurrence: AU)
  Receive Date: 20211103
  Receipt Date: 20211103
  Transmission Date: 20220303
  Serious: Yes (Other)
  Sender: FDA-Public Use
  Company Number: AU-TASMAN PHARMA, INC.-2021TSM00332

PATIENT
  Age: 41 Year
  Sex: Male

DRUGS (1)
  1. CLOZAPINE [Suspect]
     Active Substance: CLOZAPINE
     Dosage: 12.5 MG
     Dates: start: 20211008, end: 20211011

REACTIONS (11)
  - Pericarditis [Unknown]
  - Myocarditis [Unknown]
  - Electrocardiogram ST segment elevation [Unknown]
  - Right ventricular hypertrophy [Unknown]
  - Staphylococcus test positive [Unknown]
  - Sinus tachycardia [Unknown]
  - Cardiac disorder [Unknown]
  - Pyrexia [Unknown]
  - QRS axis abnormal [Unknown]
  - Troponin I increased [Unknown]
  - C-reactive protein increased [Unknown]

NARRATIVE: CASE EVENT DATE: 20211001
